FAERS Safety Report 8443336-X (Version None)
Quarter: 2012Q2

REPORT INFORMATION
  Report Type: 
  Country: None (occurrence: None)
  Receive Date: 20120618
  Receipt Date: 20120607
  Transmission Date: 20120825
  Serious: Yes (Hospitalization, Other)
  Sender: FDA-Public Use
  Company Number: JP-BRISTOL-MYERS SQUIBB COMPANY-16556276

PATIENT
  Age: 86 Year
  Sex: Female

DRUGS (3)
  1. ABILIFY [Suspect]
     Route: 048
  2. GLYBURIDE [Concomitant]
     Dosage: 1 DF = TABLET
  3. BASEN [Concomitant]

REACTIONS (2)
  - FRACTURE [None]
  - HYPERGLYCAEMIA [None]
